FAERS Safety Report 17801478 (Version 7)
Quarter: 2020Q3

REPORT INFORMATION
  Report Type: Spontaneous
  Country: NL (occurrence: NL)
  Receive Date: 20200519
  Receipt Date: 20200821
  Transmission Date: 20201102
  Serious: Yes (Life-Threatening, Hospitalization, Other)
  Sender: FDA-Public Use
  Company Number: NVSC2020NL131829

PATIENT
  Age: 35 Year
  Sex: Male
  Weight: 89 kg

DRUGS (13)
  1. LOPINAVIR,RITONAVIR [Interacting]
     Active Substance: LOPINAVIR\RITONAVIR
     Indication: COVID-19 PNEUMONIA
     Dosage: 2 DOSAGE FORM, QD (UNIT DOSE: 400/100 MG)
     Route: 048
     Dates: start: 202003, end: 202003
  2. CEFUROXIME. [Concomitant]
     Active Substance: CEFUROXIME
     Indication: ANTIBIOTIC THERAPY
  3. PREDNISOLONE. [Suspect]
     Active Substance: PREDNISOLONE
     Indication: RENAL TRANSPLANT
     Dosage: 7.5 MG, QD
     Route: 065
     Dates: start: 2016
  4. CEFTRIAXONE. [Concomitant]
     Active Substance: CEFTRIAXONE
     Indication: COVID-19
     Dosage: UNK
     Route: 042
     Dates: start: 202003
  5. PREDNISOLONE. [Suspect]
     Active Substance: PREDNISOLONE
     Indication: IMMUNOSUPPRESSANT DRUG THERAPY
  6. CEFTRIAXONE. [Concomitant]
     Active Substance: CEFTRIAXONE
     Indication: ANTIBIOTIC THERAPY
  7. EVEROLIMUS. [Suspect]
     Active Substance: EVEROLIMUS
     Indication: IMMUNOSUPPRESSANT DRUG THERAPY
     Dosage: 6 MILLIGRAM, QD
     Route: 065
     Dates: start: 2016, end: 202003
  8. CEFUROXIME. [Concomitant]
     Active Substance: CEFUROXIME
     Indication: COVID-19
     Dosage: UNK
     Route: 042
     Dates: start: 202003, end: 202003
  9. EVEROLIMUS. [Interacting]
     Active Substance: EVEROLIMUS
     Indication: RENAL TRANSPLANT
     Dosage: 4 MILLIGRAM, QD
     Route: 065
     Dates: start: 202003, end: 202003
  10. LOPINAVIR,RITONAVIR [Interacting]
     Active Substance: LOPINAVIR\RITONAVIR
     Indication: COVID-19
  11. LOPINAVIR,RITONAVIR [Interacting]
     Active Substance: LOPINAVIR\RITONAVIR
     Indication: ANTIVIRAL TREATMENT
  12. CHLOROQUINE. [Interacting]
     Active Substance: CHLOROQUINE
     Indication: COVID-19 PNEUMONIA
     Dosage: 100 MG
     Route: 048
  13. CHLOROQUINE. [Interacting]
     Active Substance: CHLOROQUINE
     Indication: COVID-19
     Dosage: 300 MG, BID AFTER 600 MG LOADING DOSE
     Route: 048
     Dates: start: 202003, end: 202003

REACTIONS (41)
  - Acute kidney injury [Recovering/Resolving]
  - Bacterial infection [Unknown]
  - Tachypnoea [Recovering/Resolving]
  - Rhabdomyolysis [Recovered/Resolved]
  - Headache [Recovering/Resolving]
  - Drug level increased [Unknown]
  - Acute pulmonary oedema [Recovered/Resolved]
  - Renal failure [Recovering/Resolving]
  - COVID-19 pneumonia [Recovering/Resolving]
  - Rhinorrhoea [Recovering/Resolving]
  - Nausea [Recovering/Resolving]
  - Myalgia [Recovering/Resolving]
  - Renal impairment [Recovering/Resolving]
  - Off label use [Unknown]
  - Toxicity to various agents [Recovered/Resolved]
  - Rales [Recovering/Resolving]
  - Nasal congestion [Recovering/Resolving]
  - Interstitial lung disease [Recovered/Resolved]
  - Respiratory alkalosis [Recovered/Resolved]
  - Hypoxia [Recovered/Resolved]
  - Metabolic acidosis [Recovering/Resolving]
  - COVID-19 [Recovered/Resolved]
  - Dyspnoea [Recovering/Resolving]
  - Pyrexia [Recovering/Resolving]
  - Drug interaction [Unknown]
  - Lymphopenia [Recovering/Resolving]
  - Vomiting [Recovering/Resolving]
  - Productive cough [Recovering/Resolving]
  - Tubulointerstitial nephritis [Not Recovered/Not Resolved]
  - Pneumococcal infection [Unknown]
  - Cough [Recovering/Resolving]
  - Diarrhoea [Recovering/Resolving]
  - Renal injury [Unknown]
  - Product use in unapproved indication [Unknown]
  - Respiratory failure [Recovered/Resolved]
  - Condition aggravated [Unknown]
  - Transaminases increased [Recovered/Resolved]
  - Pneumonitis [Unknown]
  - Malaise [Recovering/Resolving]
  - Lung consolidation [Recovering/Resolving]
  - Acute respiratory distress syndrome [Recovering/Resolving]

NARRATIVE: CASE EVENT DATE: 202002
